FAERS Safety Report 4875594-2 (Version None)
Quarter: 2006Q1

REPORT INFORMATION
  Report Type: 
  Country: None (occurrence: None)
  Receive Date: 20060109
  Receipt Date: 20051216
  Transmission Date: 20060701
  Serious: Yes (Other)
  Sender: FDA-Public Use
  Company Number: US-ROCHE-429305

PATIENT
  Sex: Female
  Weight: 2.7 kg

DRUGS (7)
  1. INVIRASE [Suspect]
     Indication: SYSTEMIC ANTIVIRAL TREATMENT
     Dates: start: 20051017
  2. VIREAD [Concomitant]
     Indication: SYSTEMIC ANTIVIRAL TREATMENT
     Dates: end: 20050228
  3. EPIVIR [Concomitant]
     Indication: SYSTEMIC ANTIVIRAL TREATMENT
     Dates: end: 20050228
  4. KALETRA [Concomitant]
     Indication: SYSTEMIC ANTIVIRAL TREATMENT
     Dates: end: 20050228
  5. TRUVADA [Concomitant]
     Indication: SYSTEMIC ANTIVIRAL TREATMENT
     Dates: start: 20050406, end: 20050506
  6. COMBIVIR [Concomitant]
     Indication: SYSTEMIC ANTIVIRAL TREATMENT
     Dates: start: 20050506
  7. TRIZIVIR [Concomitant]
     Indication: SYSTEMIC ANTIVIRAL TREATMENT
     Dates: start: 20051011

REACTIONS (3)
  - CEPHALHAEMATOMA [None]
  - DRUG EXPOSURE BEFORE PREGNANCY [None]
  - DRUG EXPOSURE DURING PREGNANCY [None]
